FAERS Safety Report 17297963 (Version 1)
Quarter: 2020Q1

REPORT INFORMATION
  Report Type: Spontaneous
  Country: AU (occurrence: AU)
  Receive Date: 20200121
  Receipt Date: 20200121
  Transmission Date: 20200409
  Serious: Yes (Other)
  Sender: FDA-Public Use
  Company Number: NVSC2020AU009345

PATIENT
  Age: 38 Year
  Sex: Female

DRUGS (1)
  1. GILENYA [Suspect]
     Active Substance: FINGOLIMOD HYDROCHLORIDE
     Indication: PRODUCT USED FOR UNKNOWN INDICATION
     Route: 065

REACTIONS (23)
  - C-reactive protein increased [Unknown]
  - Monocytosis [Unknown]
  - Red cell distribution width increased [Unknown]
  - Alanine aminotransferase increased [Unknown]
  - Hypochromasia [Unknown]
  - Neutrophilia [Unknown]
  - Lymphocyte count decreased [Unknown]
  - Gamma-glutamyltransferase increased [Unknown]
  - Angiotensin converting enzyme increased [Unknown]
  - Blood chloride increased [Unknown]
  - Red blood cell count increased [Unknown]
  - Blood pressure increased [Unknown]
  - Blood bicarbonate decreased [Unknown]
  - Blood bilirubin increased [Unknown]
  - Haematocrit increased [Unknown]
  - Haemoglobinaemia [Unknown]
  - Lipase increased [Unknown]
  - Macrocytosis [Unknown]
  - Mean cell haemoglobin increased [Unknown]
  - Aspartate aminotransferase increased [Unknown]
  - Blood albumin decreased [Unknown]
  - Haemoglobin increased [Unknown]
  - Mean cell volume decreased [Unknown]
